FAERS Safety Report 18039729 (Version 1)
Quarter: 2020Q3

REPORT INFORMATION
  Report Type: Spontaneous
  Country: CA (occurrence: CA)
  Receive Date: 20200718
  Receipt Date: 20200718
  Transmission Date: 20201103
  Serious: Yes (Hospitalization)
  Sender: FDA-Public Use
  Company Number: CA-ACCORD-189937

PATIENT
  Sex: Female

DRUGS (16)
  1. DEXILANT [Concomitant]
     Active Substance: DEXLANSOPRAZOLE
     Route: 048
  2. ZOPICLONE [Concomitant]
     Active Substance: ZOPICLONE
  3. PREDNISONE. [Concomitant]
     Active Substance: PREDNISONE
  4. PREDNISONE. [Concomitant]
     Active Substance: PREDNISONE
  5. MYCOPHENOLIC ACID. [Suspect]
     Active Substance: MYCOPHENOLIC ACID
     Indication: PULMONARY FIBROSIS
  6. AMITRIPTYLINE [Concomitant]
     Active Substance: AMITRIPTYLINE
  7. PREGABALIN. [Concomitant]
     Active Substance: PREGABALIN
  8. TIAZAC XC [Concomitant]
     Active Substance: DILTIAZEM HYDROCHLORIDE
  9. FORTEO [Concomitant]
     Active Substance: TERIPARATIDE
     Dosage: SOLUTION SUBCUTANEOUS
     Route: 058
  10. SYNTHROID [Concomitant]
     Active Substance: LEVOTHYROXINE SODIUM
  11. PARACETAMOL [Concomitant]
     Active Substance: ACETAMINOPHEN
  12. IRON [Concomitant]
     Active Substance: IRON
  13. SENNOSIDE A+B [Concomitant]
     Active Substance: SENNOSIDES A AND B
  14. SYMBICORT [Concomitant]
     Active Substance: BUDESONIDE\FORMOTEROL FUMARATE DIHYDRATE
  15. EMOLAX [Concomitant]
  16. DOCUSATE [Concomitant]
     Active Substance: DOCUSATE

REACTIONS (2)
  - Intervertebral disc protrusion [Unknown]
  - Off label use [Unknown]
